FAERS Safety Report 13961764 (Version 3)
Quarter: 2017Q4

REPORT INFORMATION
  Report Type: Spontaneous
  Country: SE (occurrence: SE)
  Receive Date: 20170912
  Receipt Date: 20171005
  Transmission Date: 20180320
  Serious: Yes (Hospitalization)
  Sender: FDA-Public Use
  Company Number: SE-ASTRAZENECA-2017SE91663

PATIENT
  Age: 69 Year
  Sex: Male

DRUGS (3)
  1. METFORMIN [Concomitant]
     Active Substance: METFORMIN HYDROCHLORIDE
  2. BYDUREON [Suspect]
     Active Substance: EXENATIDE
     Indication: TYPE 2 DIABETES MELLITUS
     Dosage: ONCE A WEEK
     Route: 065
     Dates: start: 20170602, end: 20170906
  3. TOUJEO [Concomitant]
     Active Substance: INSULIN GLARGINE
     Dosage: 120E/DAY

REACTIONS (4)
  - Chest discomfort [Unknown]
  - Palpitations [Unknown]
  - Hypertension [Unknown]
  - Heart rate increased [Unknown]
